FAERS Safety Report 6554190-5 (Version None)
Quarter: 2010Q1

REPORT INFORMATION
  Report Type: 
  Country: None (occurrence: None)
  Receive Date: 20100127
  Receipt Date: 20100118
  Transmission Date: 20100710
  Serious: Yes (Death, Hospitalization)
  Sender: FDA-Public Use
  Company Number: KR-PFIZER INC-2009292012

PATIENT
  Age: 49 Year
  Sex: Female
  Weight: 34.8 kg

DRUGS (4)
  1. VORICONAZOLE [Suspect]
     Indication: ASPERGILLOSIS
     Dosage: 100 MG, 2X/DAY
     Route: 048
     Dates: start: 20080319, end: 20080624
  2. GLEEVEC [Concomitant]
     Indication: ACUTE LYMPHOCYTIC LEUKAEMIA
     Dosage: 400 MG, 1X/DAY
     Route: 048
     Dates: start: 20080307, end: 20080623
  3. MAXIPIME [Concomitant]
     Indication: PNEUMONIA
     Dosage: 2 G, 2X/DAY
     Route: 042
     Dates: start: 20080619, end: 20080620
  4. ISEPACIN [Concomitant]
     Indication: PNEUMONIA
     Dosage: 400 MG, 1X/DAY
     Route: 042
     Dates: start: 20080619, end: 20080620

REACTIONS (2)
  - COLITIS [None]
  - LEUKAEMIA [None]
